FAERS Safety Report 4816064-7 (Version None)
Quarter: 2005Q4

REPORT INFORMATION
  Report Type: 
  Country: None (occurrence: None)
  Receive Date: 20051026
  Receipt Date: 20051012
  Transmission Date: 20060501
  Serious: Yes (Other)
  Sender: FDA-Public Use
  Company Number: USA0508104667

PATIENT
  Age: 61 Year
  Sex: Female

DRUGS (3)
  1. EVISTA [Suspect]
     Indication: OSTEOPOROSIS
     Dosage: 60 MG DAY
  2. THYROID TAB [Concomitant]
  3. ALLERGRA (FEXOFENADINE HYDROCHLORIDE) [Concomitant]

REACTIONS (1)
  - UTERINE CANCER [None]
